FAERS Safety Report 24608578 (Version 2)
Quarter: 2024Q4

REPORT INFORMATION
  Report Type: Spontaneous
  Country: AT (occurrence: AT)
  Receive Date: 20241112
  Receipt Date: 20241118
  Transmission Date: 20250114
  Serious: Yes (Other)
  Sender: BIOVITRUM
  Company Number: AT-BIOVITRUM-2024-AT-014326

PATIENT
  Age: 18 Year

DRUGS (1)
  1. KINERET [Suspect]
     Active Substance: ANAKINRA
     Indication: Chronic infantile neurological cutaneous and articular syndrome

REACTIONS (3)
  - Amyloidosis [Unknown]
  - Injection site nodule [Unknown]
  - Off label use [Unknown]
